FAERS Safety Report 23181560 (Version 1)
Quarter: 2023Q4

REPORT INFORMATION
  Report Type: Report from Study
  Country: US (occurrence: US)
  Receive Date: 20231114
  Receipt Date: 20231114
  Transmission Date: 20240110
  Serious: Yes (Hospitalization, Other)
  Sender: FDA-Public Use
  Company Number: US-ABBVIE-5490404

PATIENT
  Sex: Female

DRUGS (1)
  1. RINVOQ [Suspect]
     Active Substance: UPADACITINIB
     Indication: Crohn^s disease
     Dosage: STRENGTH:45MG
     Route: 048
     Dates: start: 20230928, end: 20231016

REACTIONS (13)
  - Erythema [Unknown]
  - Cellulitis staphylococcal [Recovering/Resolving]
  - Periorbital inflammation [Unknown]
  - Respiratory arrest [Unknown]
  - Cardiac arrest [Unknown]
  - Blood pressure decreased [Recovered/Resolved]
  - Peripheral swelling [Unknown]
  - Blood potassium abnormal [Recovered/Resolved]
  - Vancomycin infusion reaction [Recovered/Resolved]
  - Pruritus [Unknown]
  - Acne cystic [Unknown]
  - Infusion site injury [Unknown]
  - Blood electrolytes abnormal [Recovered/Resolved]

NARRATIVE: CASE EVENT DATE: 20230101
